FAERS Safety Report 11138827 (Version 7)
Quarter: 2016Q3

REPORT INFORMATION
  Report Type: Report from Study
  Country: CA (occurrence: CA)
  Receive Date: 20150527
  Receipt Date: 20160825
  Transmission Date: 20161109
  Serious: Yes (Hospitalization, Other)
  Sender: FDA-Public Use
  Company Number: CA-ROCHE-1449382

PATIENT
  Age: 73 Year
  Sex: Male

DRUGS (24)
  1. METHYLPREDNISOLONE. [Concomitant]
     Active Substance: METHYLPREDNISOLONE
     Indication: PREMEDICATION
     Route: 042
     Dates: start: 20140812
  2. DILTIAZEM. [Concomitant]
     Active Substance: DILTIAZEM
  3. RAMIPRIL. [Concomitant]
     Active Substance: RAMIPRIL
  4. STATEX (CANADA) [Concomitant]
     Active Substance: MORPHINE SULFATE
  5. OXAZEPAM. [Concomitant]
     Active Substance: OXAZEPAM
  6. FOLIC ACID. [Concomitant]
     Active Substance: FOLIC ACID
  7. PRED MILD [Concomitant]
     Active Substance: PREDNISOLONE ACETATE
     Route: 047
  8. FLEXERIL (CANADA) [Concomitant]
  9. FLECAINIDE [Concomitant]
     Active Substance: FLECAINIDE
  10. PANTOPRAZOLE [Concomitant]
     Active Substance: PANTOPRAZOLE SODIUM
  11. HYDROMORPHONE [Concomitant]
     Active Substance: HYDROMORPHONE
  12. DIPHENHYDRAMINE HCL [Concomitant]
     Active Substance: DIPHENHYDRAMINE HYDROCHLORIDE
     Indication: PREMEDICATION
     Route: 048
     Dates: start: 20140812
  13. FENTANYL. [Concomitant]
     Active Substance: FENTANYL
  14. TRAZODONE [Concomitant]
     Active Substance: TRAZODONE HYDROCHLORIDE
  15. RITUXAN [Suspect]
     Active Substance: RITUXIMAB
     Indication: RHEUMATOID ARTHRITIS
     Dosage: LAST DOSE: 25/AUG/2014
     Route: 042
     Dates: start: 20140812
  16. TYLENOL WITH CODEINE [Concomitant]
     Active Substance: ACETAMINOPHEN\CODEINE PHOSPHATE
  17. WARFARIN [Concomitant]
     Active Substance: WARFARIN
  18. CYCLOBENZAPRINE [Concomitant]
     Active Substance: CYCLOBENZAPRINE
  19. RITUXAN [Suspect]
     Active Substance: RITUXIMAB
     Route: 042
     Dates: start: 20151123
  20. MORPHINE [Suspect]
     Active Substance: MORPHINE
     Indication: PRODUCT USED FOR UNKNOWN INDICATION
     Route: 065
  21. PREGABALINUM [Concomitant]
  22. CRESTOR [Concomitant]
     Active Substance: ROSUVASTATIN CALCIUM
  23. DIGOXIN. [Concomitant]
     Active Substance: DIGOXIN
  24. ACETAMINOPHEN. [Concomitant]
     Active Substance: ACETAMINOPHEN
     Indication: PREMEDICATION
     Route: 048
     Dates: start: 20140812

REACTIONS (20)
  - Pancreatitis [Recovered/Resolved]
  - Flatulence [Unknown]
  - Arthropathy [Unknown]
  - Rash [Not Recovered/Not Resolved]
  - Blood blister [Unknown]
  - Arthralgia [Not Recovered/Not Resolved]
  - Arthropathy [Recovering/Resolving]
  - Arthritis [Unknown]
  - Pain [Not Recovered/Not Resolved]
  - Hypotension [Unknown]
  - Blood pressure increased [Unknown]
  - Movement disorder [Not Recovered/Not Resolved]
  - Infusion related reaction [Unknown]
  - Decreased activity [Unknown]
  - Blood pressure systolic increased [Unknown]
  - Bone pain [Not Recovered/Not Resolved]
  - Joint swelling [Not Recovered/Not Resolved]
  - Weight decreased [Unknown]
  - Diarrhoea [Unknown]
  - Abdominal distension [Unknown]

NARRATIVE: CASE EVENT DATE: 20140812
